FAERS Safety Report 13386974 (Version 13)
Quarter: 2019Q2

REPORT INFORMATION
  Report Type: Spontaneous
  Country: US (occurrence: US)
  Receive Date: 20170330
  Receipt Date: 20190425
  Transmission Date: 20190711
  Serious: Yes (Congenital Anomaly, Other)
  Sender: FDA-Public Use
  Company Number: PHEH2017US008971

PATIENT
  Sex: Female

DRUGS (1)
  1. ZOFRAN [Suspect]
     Active Substance: ONDANSETRON HYDROCHLORIDE
     Indication: FOETAL EXPOSURE DURING PREGNANCY
     Route: 064

REACTIONS (48)
  - Sinusitis bacterial [Unknown]
  - Tonsillitis streptococcal [Unknown]
  - Goitre [Unknown]
  - Cough [Unknown]
  - Tinea versicolour [Unknown]
  - Left-to-right cardiac shunt [Unknown]
  - Rathke^s cleft cyst [Unknown]
  - Seizure [Recovered/Resolved]
  - Hypoxia [Unknown]
  - Visual field defect [Unknown]
  - Influenza [Unknown]
  - Hyperbilirubinaemia [Unknown]
  - Acute respiratory failure [Unknown]
  - Status epilepticus [Unknown]
  - Respiratory tract infection [Unknown]
  - Foetal exposure during pregnancy [Unknown]
  - Injury [Unknown]
  - Dehydration [Unknown]
  - Haematuria [Unknown]
  - Candida nappy rash [Unknown]
  - Dermatitis contact [Unknown]
  - Ventricular septal defect [Unknown]
  - Bronchiolitis [Unknown]
  - Diabetes mellitus [Unknown]
  - Generalised tonic-clonic seizure [Unknown]
  - Pyrexia [Unknown]
  - Back pain [Unknown]
  - Stridor [Unknown]
  - Adjustment disorder with anxiety [Unknown]
  - Jaundice [Unknown]
  - Cardiac murmur [Unknown]
  - Headache [Unknown]
  - Viral infection [Unknown]
  - Laevocardia [Unknown]
  - Atrial septal defect [Unknown]
  - Pituitary enlargement [Unknown]
  - Migraine [Unknown]
  - Oropharyngeal pain [Unknown]
  - Aorta hypoplasia [Unknown]
  - Apnoea [Unknown]
  - Scoliosis [Unknown]
  - Febrile convulsion [Unknown]
  - Ear pain [Unknown]
  - Asthma [Unknown]
  - Pyelocaliectasis [Unknown]
  - Tricuspid valve incompetence [Unknown]
  - Gastroenteritis rotavirus [Unknown]
  - Otitis media acute [Unknown]
